FAERS Safety Report 12990303 (Version 2)
Quarter: 2017Q1

REPORT INFORMATION
  Report Type: Spontaneous
  Country: US (occurrence: US)
  Receive Date: 20161201
  Receipt Date: 20170117
  Transmission Date: 20170428
  Serious: Yes (Other)
  Sender: FDA-Public Use
  Company Number: US-PFIZER INC-2016548882

PATIENT
  Age: 59 Year
  Sex: Male

DRUGS (5)
  1. CRESEMBA [Suspect]
     Active Substance: ISAVUCONAZONIUM SULFATE
     Indication: MUCORMYCOSIS
     Dosage: 372 MG, (EVERY 8 HOURS (6 DOSES))
     Route: 042
     Dates: start: 20161003, end: 20161004
  2. NEUPOGEN [Concomitant]
     Active Substance: FILGRASTIM
     Dosage: UNK
     Dates: start: 20161017, end: 20161103
  3. MEROPENEM. [Suspect]
     Active Substance: MEROPENEM
     Dosage: 1 G, DAILY
     Route: 042
     Dates: start: 20161010, end: 20161015
  4. CRESEMBA [Suspect]
     Active Substance: ISAVUCONAZONIUM SULFATE
     Dosage: 372 MG, DAILY
     Route: 042
     Dates: start: 20161005, end: 20161102
  5. NEUPOGEN [Concomitant]
     Active Substance: FILGRASTIM
     Dosage: UNK
     Dates: start: 20161013, end: 20161014

REACTIONS (1)
  - White blood cell count decreased [Recovering/Resolving]
